FAERS Safety Report 9251573 (Version 2)
Quarter: 2013Q3

REPORT INFORMATION
  Report Type: Spontaneous
  Country: DK (occurrence: CA)
  Receive Date: 20130424
  Receipt Date: 20130903
  Transmission Date: 20140515
  Serious: Yes (Hospitalization, Other)
  Sender: FDA-Public Use
  Company Number: CA-FRI-1000044584

PATIENT
  Age: 60 Year
  Sex: Male

DRUGS (16)
  1. ESCITALOPRAM [Suspect]
     Indication: DEPRESSION
     Dosage: 20 MG
     Route: 048
     Dates: end: 20121009
  2. ESCITALOPRAM [Suspect]
     Dosage: 10 MG
     Route: 048
     Dates: start: 20121010, end: 20121011
  3. ESCITALOPRAM [Suspect]
     Dosage: 5 MG
     Route: 048
     Dates: start: 20121012, end: 20121013
  4. FLUCONAZOLE [Suspect]
     Indication: GRAFT INFECTION
     Dosage: 400 MG
     Route: 048
     Dates: start: 20121009, end: 20121119
  5. MIRTAZAPINE [Suspect]
     Indication: DEPRESSION
     Dosage: 15 MG
     Route: 048
     Dates: start: 20121011, end: 20121119
  6. ZYVOXAM [Suspect]
     Indication: GRAFT INFECTION
     Dosage: 1200 MG
     Route: 048
     Dates: start: 20121015, end: 20121119
  7. HYDROMORPHONE [Suspect]
     Dosage: 1-2 MG EVERY 4 HOURS
     Route: 058
  8. HYDROMORPHONE [Suspect]
     Dosage: 2-4MG EVERY 4 HOURS
     Route: 048
  9. ACETAMINOPHEN [Concomitant]
     Route: 048
  10. ATORVASTATIN CALCIUM [Concomitant]
     Dosage: 10 MG
     Route: 048
  11. CLONAZEPAM [Concomitant]
     Dosage: 1 MG
  12. DIAZEPAM [Concomitant]
     Route: 048
  13. DIMENHYDRINATE [Concomitant]
     Dosage: 25-50 MG EVERY 4-6 HOURS
     Route: 048
  14. DIMENHYDRINATE [Concomitant]
     Dosage: 25-50 MG EVERY 4-6 HOURS AS NEEDED
     Route: 050
  15. ONDANSETRON [Concomitant]
     Dosage: 4 MG EVERY 8 HOURS AS
     Route: 050
  16. PANTOPRAZOLE [Concomitant]
     Dosage: 40 MG
     Route: 048

REACTIONS (9)
  - Serotonin syndrome [Recovered/Resolved]
  - Aggression [Recovered/Resolved]
  - Influenza like illness [Recovered/Resolved]
  - Blood pressure decreased [Recovered/Resolved]
  - Hyperhidrosis [Recovered/Resolved]
  - Pain [Recovered/Resolved]
  - Diarrhoea [Recovered/Resolved]
  - Wound infection [Unknown]
  - Drug interaction [Recovered/Resolved]
